FAERS Safety Report 7235828-6 (Version None)
Quarter: 2011Q1

REPORT INFORMATION
  Report Type: 
  Country: None (occurrence: None)
  Receive Date: 20110120
  Receipt Date: 20110119
  Transmission Date: 20110831
  Serious: Yes (Death)
  Sender: FDA-Public Use
  Company Number: CL-ROCHE-683883

PATIENT
  Weight: 82 kg

DRUGS (5)
  1. XELODA [Suspect]
     Dosage: FREQUENCY: 600MG IN MORNING AND 1000MG IN NIGHT
     Route: 048
     Dates: end: 20100315
  2. ENALAPRIL [Concomitant]
     Indication: HYPERTENSION
  3. ACETYLSALICYLIC ACID [Concomitant]
  4. METOCLOPRAMIDE [Concomitant]
  5. XELODA [Suspect]
     Indication: COLON CANCER
     Route: 048
     Dates: start: 20100104

REACTIONS (8)
  - DIARRHOEA [None]
  - PAROSMIA [None]
  - DISEASE PROGRESSION [None]
  - NAUSEA [None]
  - ABDOMINAL PAIN [None]
  - FATIGUE [None]
  - VOMITING [None]
  - PALMAR-PLANTAR ERYTHRODYSAESTHESIA SYNDROME [None]
